FAERS Safety Report 16743117 (Version 1)
Quarter: 2019Q3

REPORT INFORMATION
  Report Type: Report from Study
  Country: AU (occurrence: AU)
  Receive Date: 20190827
  Receipt Date: 20190827
  Transmission Date: 20191005
  Serious: Yes (Other)
  Sender: FDA-Public Use
  Company Number: AU-TOLMAR, INC.-2019AU008817

PATIENT

DRUGS (1)
  1. ELIGARD [Suspect]
     Active Substance: LEUPROLIDE ACETATE
     Indication: PROSTATE CANCER
     Dosage: 22.5 MG, Q3MONTHS
     Route: 058
     Dates: start: 20190525

REACTIONS (7)
  - Hypoacusis [Unknown]
  - Hot flush [Unknown]
  - Myalgia [Unknown]
  - Dry mouth [Unknown]
  - Fatigue [Unknown]
  - Pollakiuria [Unknown]
  - Injection site pain [Unknown]
